FAERS Safety Report 5897055-4 (Version None)
Quarter: 2008Q3

REPORT INFORMATION
  Report Type: 
  Country: None (occurrence: None)
  Receive Date: 20080924
  Receipt Date: 20080910
  Transmission Date: 20090109
  Serious: Yes (Disabling)
  Sender: FDA-Public Use
  Company Number: GB-MERCK-0608GBR00054

PATIENT
  Age: 5 Year
  Sex: Female
  Weight: 28 kg

DRUGS (3)
  1. SINGULAIR [Suspect]
     Indication: ASTHMA
     Route: 048
     Dates: start: 20060401, end: 20060801
  2. ALBUTEROL [Concomitant]
     Indication: ASTHMA
     Dates: start: 20031201
  3. FLUTICASONE PROPIONATE AND SALMETEROL XINAFOATE [Concomitant]
     Indication: ASTHMA
     Route: 065
     Dates: start: 20051201

REACTIONS (1)
  - EPILEPSY [None]
